FAERS Safety Report 7200661-8 (Version None)
Quarter: 2010Q4

REPORT INFORMATION
  Report Type: 
  Country: None (occurrence: None)
  Receive Date: 20101228
  Receipt Date: 20101209
  Transmission Date: 20110411
  Serious: Yes (Hospitalization)
  Sender: FDA-Public Use
  Company Number: PHHY2010TW83610

PATIENT
  Sex: Female
  Weight: 67 kg

DRUGS (1)
  1. CGS 20267 [Suspect]
     Indication: BREAST CANCER
     Dosage: 2.5 MG DAILY
     Route: 048
     Dates: start: 20090815

REACTIONS (4)
  - BASAL CELL CARCINOMA [None]
  - MASS [None]
  - NEOPLASM MALIGNANT [None]
  - SKIN NEOPLASM EXCISION [None]
